FAERS Safety Report 8887310 (Version 1)
Quarter: 2012Q4

REPORT INFORMATION
  Report Type: 
  Country: US (occurrence: US)
  Receive Date: 20121101
  Receipt Date: 20121101
  Transmission Date: 20130627
  Serious: Yes (Other)
  Sender: FDA-Public Use
  Company Number: US-PFIZER INC-2012271845

PATIENT
  Age: 47 Year
  Sex: Male

DRUGS (2)
  1. LIPITOR [Suspect]
     Dosage: 40 mg, one tablet daily
  2. ZOLOFT [Suspect]
     Dosage: 25 mg, 3 tablets daily

REACTIONS (2)
  - Myocardial infarction [Unknown]
  - Activities of daily living impaired [Unknown]
